FAERS Safety Report 18852604 (Version 2)
Quarter: 2022Q1

REPORT INFORMATION
  Report Type: Report from Study
  Country: CA (occurrence: CA)
  Receive Date: 20210205
  Receipt Date: 20220119
  Transmission Date: 20220423
  Serious: Yes (Other)
  Sender: FDA-Public Use
  Company Number: CA-TAKEDA-2019TUS069350

PATIENT
  Age: 72 Year
  Sex: Male

DRUGS (18)
  1. VEDOLIZUMAB [Suspect]
     Active Substance: VEDOLIZUMAB
     Indication: Crohn^s disease
     Dosage: 300 MILLIGRAM
     Route: 042
     Dates: start: 20190214
  2. VEDOLIZUMAB [Suspect]
     Active Substance: VEDOLIZUMAB
     Dosage: 300 MILLIGRAM, Q4WEEKS
     Route: 042
     Dates: start: 20191210
  3. VEDOLIZUMAB [Suspect]
     Active Substance: VEDOLIZUMAB
     Dosage: 300 MILLIGRAM, Q4WEEKS
     Route: 042
  4. VEDOLIZUMAB [Suspect]
     Active Substance: VEDOLIZUMAB
     Dosage: 300 MILLIGRAM, Q4WEEKS
     Route: 042
     Dates: end: 20220106
  5. DEXILANT [Suspect]
     Active Substance: DEXLANSOPRAZOLE
     Dosage: 60 MILLIGRAM, QD
     Route: 048
  6. CORTIMENT                          /00028601/ [Concomitant]
     Dosage: 9 MILLIGRAM
  7. PENTASA [Concomitant]
     Active Substance: MESALAMINE
     Dosage: 4 MILLIGRAM, QD
  8. PENTASA [Concomitant]
     Active Substance: MESALAMINE
     Dosage: UNK (500 MG TABL X 8 TAB)
  9. ENTOCORT [Concomitant]
     Active Substance: BUDESONIDE
     Dosage: 2.3 MILLIGRAM
  10. DENOSUMAB [Concomitant]
     Active Substance: DENOSUMAB
     Indication: Bone loss
     Dosage: UNK
  11. INDAPAMIDE [Concomitant]
     Active Substance: INDAPAMIDE
     Indication: Hypertension
     Dosage: UNK
  12. SALOFALK                           /00000301/ [Concomitant]
     Dosage: 4 GRAM, QD
  13. BUDESONIDE [Concomitant]
     Active Substance: BUDESONIDE
     Dosage: 0.02 MILLIGRAM
     Route: 054
  14. PARIET EC [Concomitant]
     Dosage: 20 MILLIGRAM, QD
     Route: 048
  15. CORTIFOAM [Concomitant]
     Active Substance: HYDROCORTISONE ACETATE
     Dosage: UNK, QD
  16. COVERSYL PLUS                      /01421201/ [Concomitant]
     Dosage: UNK
  17. PRADAXA [Concomitant]
     Active Substance: DABIGATRAN ETEXILATE MESYLATE
     Dosage: 110 MILLIGRAM, BID
     Route: 048
  18. SIMVASTATIN [Concomitant]
     Active Substance: SIMVASTATIN
     Dosage: 40 MILLIGRAM, QD
     Route: 048

REACTIONS (7)
  - Haematochezia [Unknown]
  - Chills [Recovered/Resolved]
  - Diarrhoea [Unknown]
  - Gastrointestinal inflammation [Unknown]
  - Gastrointestinal disorder [Unknown]
  - Drug ineffective [Unknown]
  - Off label use [Unknown]

NARRATIVE: CASE EVENT DATE: 20191107
